FAERS Safety Report 6319541-5 (Version None)
Quarter: 2009Q3

REPORT INFORMATION
  Report Type: 
  Country: None (occurrence: None)
  Receive Date: 20090822
  Receipt Date: 20080915
  Transmission Date: 20100115
  Serious: No
  Sender: FDA-Public Use
  Company Number: US-ABBOTT-08P-163-0476136-00

PATIENT
  Sex: Male
  Weight: 88.984 kg

DRUGS (8)
  1. NIASPAN [Suspect]
     Indication: BLOOD CHOLESTEROL ABNORMAL
     Route: 048
     Dates: start: 20071201, end: 20080701
  2. NIASPAN [Suspect]
     Route: 048
     Dates: start: 20080701, end: 20080815
  3. NIASPAN [Suspect]
     Route: 048
     Dates: start: 20080815, end: 20080913
  4. NIASPAN [Suspect]
     Route: 048
     Dates: start: 20080913
  5. ATORVASTATIN CALCIUM [Interacting]
     Indication: BLOOD CHOLESTEROL
     Route: 048
     Dates: start: 20071201
  6. ANTERA [Interacting]
     Indication: BLOOD CHOLESTEROL
     Route: 048
     Dates: start: 20071201
  7. ASPIRIN [Concomitant]
     Indication: DRUG USE FOR UNKNOWN INDICATION
     Route: 048
  8. FISH OIL [Concomitant]
     Indication: DRUG USE FOR UNKNOWN INDICATION
     Route: 048
     Dates: start: 20070101

REACTIONS (3)
  - DIZZINESS [None]
  - DRUG INTERACTION [None]
  - SKIN BURNING SENSATION [None]
